FAERS Safety Report 8936516 (Version 1)
Quarter: 2012Q4

REPORT INFORMATION
  Report Type: 
  Country: US (occurrence: US)
  Receive Date: 20121130
  Receipt Date: 20121130
  Transmission Date: 20130627
  Serious: Yes (Hospitalization)
  Sender: FDA-Public Use
  Company Number: US-JNJFOC-20121112878

PATIENT
  Age: 24 Year
  Sex: Male

DRUGS (3)
  1. TYLENOL PM [Suspect]
     Indication: PRODUCT USED FOR UNKNOWN INDICATION
     Dosage: 40 to 50 tablets
     Route: 048
     Dates: start: 20071025
  2. ZYPREXA [Concomitant]
     Indication: DRUG THERAPY
     Route: 065
  3. CYMBALTA [Concomitant]
     Indication: DEPRESSION
     Route: 065
     Dates: start: 20071025

REACTIONS (1)
  - Intentional overdose [Unknown]
